FAERS Safety Report 18184868 (Version 33)
Quarter: 2023Q1

REPORT INFORMATION
  Report Type: Report from Study
  Country: CN (occurrence: None)
  Receive Date: 20200824
  Receipt Date: 20230302
  Transmission Date: 20230417
  Serious: Yes (Hospitalization, Other)
  Sender: FDA-Public Use
  Company Number: CN-ROCHE-2662582

PATIENT
  Age: 68 Year
  Sex: Male
  Weight: 59.4 kg

DRUGS (120)
  1. ATEZOLIZUMAB [Suspect]
     Active Substance: ATEZOLIZUMAB
     Indication: Non-small cell lung cancer
     Dosage: ON 30/JUL/2020, HE RECEIVED MOST RECENT DOSE OF BLINDED ATEZOLIZUMAB PRIOR TO ONSET OF ANEMIA.?DATE
     Route: 041
     Dates: start: 20200730
  2. BEVACIZUMAB [Suspect]
     Active Substance: BEVACIZUMAB
     Indication: Non-small cell lung cancer
     Dosage: ON 30/JUL/2020, HE RECEIVED MOST RECENT DOSE OF BEVACIZUMAB (920 MG) PRIOR TO ONSET OF ANEMIA.?DATE
     Route: 042
     Dates: start: 20200730
  3. CARBOPLATIN [Suspect]
     Active Substance: CARBOPLATIN
     Indication: Non-small cell lung cancer
     Dosage: ON 30/JUL/2020, HE RECEIVED MOST RECENT DOSE OF CARBOPLATIN (460 MG) PRIOR TO ONSET OF ANEMIA.?DATE
     Route: 042
     Dates: start: 20200730
  4. PEMETREXED [Suspect]
     Active Substance: PEMETREXED
     Indication: Non-small cell lung cancer
     Dosage: ON 30/JUL/2020, HE RECEIVED MOST RECENT DOSE OF PEMETREXED (800 MG) PRIOR TO ONSET OF ANEMIA.?DATE O
     Route: 042
     Dates: start: 20200730
  5. ACETAMINOPHEN\DIHYDROCODEINE BITARTRATE [Concomitant]
     Active Substance: ACETAMINOPHEN\DIHYDROCODEINE BITARTRATE
     Indication: Cough
     Dates: start: 20200710, end: 20200721
  6. ACETAMINOPHEN\DIHYDROCODEINE BITARTRATE [Concomitant]
     Active Substance: ACETAMINOPHEN\DIHYDROCODEINE BITARTRATE
     Dates: start: 20200730, end: 20200805
  7. ACETAMINOPHEN\DIHYDROCODEINE BITARTRATE [Concomitant]
     Active Substance: ACETAMINOPHEN\DIHYDROCODEINE BITARTRATE
     Dates: start: 20201208, end: 20201212
  8. ACETAMINOPHEN\DIHYDROCODEINE BITARTRATE [Concomitant]
     Active Substance: ACETAMINOPHEN\DIHYDROCODEINE BITARTRATE
     Dates: start: 20200919, end: 20200925
  9. METHOXYPHENAMINE HYDROCHLORIDE [Concomitant]
     Active Substance: METHOXYPHENAMINE HYDROCHLORIDE
     Indication: Cough
     Dosage: COMPOUND METHOXYPHENAMINE HYDROCHLORIDE CAPSULES
     Dates: start: 20200710, end: 20200721
  10. METHOXYPHENAMINE HYDROCHLORIDE [Concomitant]
     Active Substance: METHOXYPHENAMINE HYDROCHLORIDE
     Indication: Productive cough
     Dates: start: 20200729, end: 20200730
  11. METHOXYPHENAMINE HYDROCHLORIDE [Concomitant]
     Active Substance: METHOXYPHENAMINE HYDROCHLORIDE
     Dates: start: 20201212, end: 20201217
  12. LEVOFLOXACIN [Concomitant]
     Active Substance: LEVOFLOXACIN
     Indication: Cough
     Dates: start: 20200710, end: 20200715
  13. AMBROXOL HYDROCHLORIDE [Concomitant]
     Active Substance: AMBROXOL HYDROCHLORIDE
     Dates: start: 20200716, end: 20200721
  14. AMBROXOL HYDROCHLORIDE [Concomitant]
     Active Substance: AMBROXOL HYDROCHLORIDE
     Dates: start: 20200729, end: 20200730
  15. VITAMIN B12 [Concomitant]
     Active Substance: CYANOCOBALAMIN
     Dates: start: 20200728, end: 20200728
  16. VITAMIN B12 [Concomitant]
     Active Substance: CYANOCOBALAMIN
     Dates: start: 20200730, end: 20200730
  17. VITAMIN B12 [Concomitant]
     Active Substance: CYANOCOBALAMIN
     Dates: start: 20200918, end: 20200918
  18. VITAMIN B12 [Concomitant]
     Active Substance: CYANOCOBALAMIN
     Dates: start: 20201222, end: 20201222
  19. LIDOCAINE HYDROCHLORIDE [Concomitant]
     Active Substance: LIDOCAINE HYDROCHLORIDE
     Indication: Local anaesthesia
     Dates: start: 20200728, end: 20200728
  20. DEXTROMETHORPHAN HYDROBROMIDE [Concomitant]
     Active Substance: DEXTROMETHORPHAN HYDROBROMIDE
     Indication: Cough
     Dosage: DEXTROMETHORPHAN HYDROBROMIDE,?CHLORPHENIRAMINE MALEATE AND?PSEUDOEPHEDRINE HYDROCHLORIDE SOLUTION
     Dates: start: 20200728, end: 20200728
  21. DEXTROMETHORPHAN HYDROBROMIDE [Concomitant]
     Active Substance: DEXTROMETHORPHAN HYDROBROMIDE
     Dates: start: 20200716, end: 20200721
  22. PALONOSETRON HYDROCHLORIDE [Concomitant]
     Active Substance: PALONOSETRON HYDROCHLORIDE
     Dates: start: 20200730, end: 20200730
  23. PALONOSETRON HYDROCHLORIDE [Concomitant]
     Active Substance: PALONOSETRON HYDROCHLORIDE
     Dates: start: 20201014, end: 20201014
  24. PALONOSETRON HYDROCHLORIDE [Concomitant]
     Active Substance: PALONOSETRON HYDROCHLORIDE
     Dates: start: 20200828, end: 20200828
  25. PALONOSETRON HYDROCHLORIDE [Concomitant]
     Active Substance: PALONOSETRON HYDROCHLORIDE
     Dates: start: 20200918, end: 20200918
  26. PALONOSETRON HYDROCHLORIDE [Concomitant]
     Active Substance: PALONOSETRON HYDROCHLORIDE
     Dates: start: 20201105, end: 20201105
  27. PALONOSETRON HYDROCHLORIDE [Concomitant]
     Active Substance: PALONOSETRON HYDROCHLORIDE
     Dates: start: 20201222, end: 20201222
  28. PALONOSETRON HYDROCHLORIDE [Concomitant]
     Active Substance: PALONOSETRON HYDROCHLORIDE
     Dates: start: 20210112, end: 20210112
  29. PALONOSETRON HYDROCHLORIDE [Concomitant]
     Active Substance: PALONOSETRON HYDROCHLORIDE
     Dates: start: 20210223, end: 20210223
  30. DEXAMETHASONE SODIUM PHOSPHATE [Concomitant]
     Active Substance: DEXAMETHASONE SODIUM PHOSPHATE
     Route: 042
     Dates: start: 20200730, end: 20200730
  31. DEXAMETHASONE SODIUM PHOSPHATE [Concomitant]
     Active Substance: DEXAMETHASONE SODIUM PHOSPHATE
     Route: 042
     Dates: start: 20201014, end: 20201014
  32. DEXAMETHASONE SODIUM PHOSPHATE [Concomitant]
     Active Substance: DEXAMETHASONE SODIUM PHOSPHATE
     Route: 042
     Dates: start: 20200828, end: 20200828
  33. DEXAMETHASONE SODIUM PHOSPHATE [Concomitant]
     Active Substance: DEXAMETHASONE SODIUM PHOSPHATE
     Route: 042
     Dates: start: 20200918, end: 20200918
  34. DEXAMETHASONE SODIUM PHOSPHATE [Concomitant]
     Active Substance: DEXAMETHASONE SODIUM PHOSPHATE
     Route: 042
     Dates: start: 20201222, end: 20201222
  35. DEXAMETHASONE SODIUM PHOSPHATE [Concomitant]
     Active Substance: DEXAMETHASONE SODIUM PHOSPHATE
     Route: 042
     Dates: start: 20210102, end: 20210102
  36. DEXAMETHASONE SODIUM PHOSPHATE [Concomitant]
     Active Substance: DEXAMETHASONE SODIUM PHOSPHATE
     Dates: start: 20210223, end: 20210223
  37. DEXAMETHASONE SODIUM PHOSPHATE [Concomitant]
     Active Substance: DEXAMETHASONE SODIUM PHOSPHATE
     Dates: start: 20210112, end: 20210112
  38. OMEPRAZOLE SODIUM [Concomitant]
     Active Substance: OMEPRAZOLE SODIUM
     Dates: start: 20200730, end: 20200730
  39. OMEPRAZOLE SODIUM [Concomitant]
     Active Substance: OMEPRAZOLE SODIUM
     Dates: start: 20201014, end: 20201014
  40. OMEPRAZOLE SODIUM [Concomitant]
     Active Substance: OMEPRAZOLE SODIUM
     Dates: start: 20200828, end: 20200828
  41. OMEPRAZOLE SODIUM [Concomitant]
     Active Substance: OMEPRAZOLE SODIUM
     Route: 065
     Dates: start: 20200918, end: 20200918
  42. OMEPRAZOLE SODIUM [Concomitant]
     Active Substance: OMEPRAZOLE SODIUM
     Dates: start: 20201222, end: 20201222
  43. OMEPRAZOLE SODIUM [Concomitant]
     Active Substance: OMEPRAZOLE SODIUM
     Dates: start: 20210102, end: 20210102
  44. OMEPRAZOLE SODIUM [Concomitant]
     Active Substance: OMEPRAZOLE SODIUM
     Dates: start: 20210223, end: 20210223
  45. OMEPRAZOLE SODIUM [Concomitant]
     Active Substance: OMEPRAZOLE SODIUM
     Dates: start: 20210112, end: 20210112
  46. METOCLOPRAMIDE [Concomitant]
     Active Substance: METOCLOPRAMIDE
     Indication: Vomiting
     Dates: start: 20200730, end: 20200730
  47. METOCLOPRAMIDE [Concomitant]
     Active Substance: METOCLOPRAMIDE
     Dates: start: 20200828, end: 20200828
  48. METOCLOPRAMIDE [Concomitant]
     Active Substance: METOCLOPRAMIDE
     Dates: start: 20200918, end: 20200918
  49. METOCLOPRAMIDE [Concomitant]
     Active Substance: METOCLOPRAMIDE
     Dates: start: 20201014, end: 20201014
  50. METOCLOPRAMIDE [Concomitant]
     Active Substance: METOCLOPRAMIDE
     Dates: start: 20201202, end: 20201202
  51. METOCLOPRAMIDE [Concomitant]
     Active Substance: METOCLOPRAMIDE
     Dates: start: 20210102, end: 20210102
  52. METOCLOPRAMIDE [Concomitant]
     Active Substance: METOCLOPRAMIDE
     Dates: start: 20201222, end: 20201222
  53. METOCLOPRAMIDE [Concomitant]
     Active Substance: METOCLOPRAMIDE
     Dates: start: 20210112, end: 20210112
  54. PHOSPHOLIPID [Concomitant]
     Active Substance: PHOSPHOLIPID
     Dates: start: 20200730, end: 20200730
  55. PHOSPHOLIPID [Concomitant]
     Active Substance: PHOSPHOLIPID
     Dates: start: 20201014, end: 20201014
  56. PHOSPHOLIPID [Concomitant]
     Active Substance: PHOSPHOLIPID
     Dates: start: 20200828, end: 20200828
  57. PHOSPHOLIPID [Concomitant]
     Active Substance: PHOSPHOLIPID
     Dates: start: 20200918, end: 20200918
  58. PHOSPHOLIPID [Concomitant]
     Active Substance: PHOSPHOLIPID
     Dates: start: 20201202, end: 20201202
  59. PHOSPHOLIPID [Concomitant]
     Active Substance: PHOSPHOLIPID
     Dates: start: 20210112, end: 20210112
  60. PHOSPHOLIPID [Concomitant]
     Active Substance: PHOSPHOLIPID
     Dates: start: 20210223, end: 20210223
  61. PHOSPHOLIPID [Concomitant]
     Active Substance: PHOSPHOLIPID
     Dates: start: 20201222, end: 20201222
  62. FOLIC ACID [Concomitant]
     Active Substance: FOLIC ACID
     Dates: start: 20200729, end: 20200806
  63. FOLIC ACID [Concomitant]
     Active Substance: FOLIC ACID
     Dates: start: 20200819, end: 20200825
  64. FOLIC ACID [Concomitant]
     Active Substance: FOLIC ACID
     Dates: start: 20200828, end: 20200903
  65. FOLIC ACID [Concomitant]
     Active Substance: FOLIC ACID
     Dates: start: 20200919, end: 20200925
  66. FOLIC ACID [Concomitant]
     Active Substance: FOLIC ACID
     Dates: start: 20201222, end: 20201229
  67. FOLIC ACID [Concomitant]
     Active Substance: FOLIC ACID
     Dates: start: 20210113, end: 20210119
  68. FOLIC ACID [Concomitant]
     Active Substance: FOLIC ACID
     Dates: start: 20210202, end: 20210208
  69. FOLIC ACID [Concomitant]
     Active Substance: FOLIC ACID
     Dates: start: 20210223, end: 20210301
  70. ERYTHROPOIETIN [Concomitant]
     Active Substance: ERYTHROPOIETIN
     Dates: start: 20200806
  71. MEGESTROL ACETATE [Concomitant]
     Active Substance: MEGESTROL ACETATE
     Dates: start: 20200819, end: 20200825
  72. MEGESTROL ACETATE [Concomitant]
     Active Substance: MEGESTROL ACETATE
     Dates: start: 20200720, end: 20200806
  73. MEGESTROL ACETATE [Concomitant]
     Active Substance: MEGESTROL ACETATE
     Dates: start: 20200828, end: 20200903
  74. MEGESTROL ACETATE [Concomitant]
     Active Substance: MEGESTROL ACETATE
     Dates: start: 20200919, end: 20200925
  75. MEGESTROL ACETATE [Concomitant]
     Active Substance: MEGESTROL ACETATE
     Dates: start: 20210113, end: 20210119
  76. MEGESTROL ACETATE [Concomitant]
     Active Substance: MEGESTROL ACETATE
     Dates: start: 20201130, end: 20201205
  77. MEGESTROL ACETATE [Concomitant]
     Active Substance: MEGESTROL ACETATE
     Dates: start: 20210202, end: 20210208
  78. MEGESTROL ACETATE [Concomitant]
     Active Substance: MEGESTROL ACETATE
     Dates: start: 20210322, end: 20210404
  79. CALCIUM GLUCONATE [Concomitant]
     Active Substance: CALCIUM GLUCONATE
     Dates: start: 20201014, end: 20201014
  80. CAPTOPRIL [Concomitant]
     Active Substance: CAPTOPRIL
     Dates: start: 20210112, end: 20210112
  81. FUROSEMIDE [Concomitant]
     Active Substance: FUROSEMIDE
     Indication: Polyuria
     Dates: start: 20210202, end: 20210208
  82. FUROSEMIDE [Concomitant]
     Active Substance: FUROSEMIDE
     Dates: start: 20210315, end: 20210322
  83. FUROSEMIDE [Concomitant]
     Active Substance: FUROSEMIDE
     Dates: start: 20210316, end: 20210320
  84. FUROSEMIDE [Concomitant]
     Active Substance: FUROSEMIDE
     Dates: start: 20210322, end: 20210404
  85. PHOSPHOLIPID [Concomitant]
     Active Substance: PHOSPHOLIPID
     Dates: start: 20200918, end: 20200918
  86. PHOSPHOLIPID [Concomitant]
     Active Substance: PHOSPHOLIPID
     Dates: start: 20201014, end: 20201014
  87. IVABRADINE HYDROCHLORIDE [Concomitant]
     Active Substance: IVABRADINE HYDROCHLORIDE
     Dates: start: 20210316, end: 20210316
  88. IPRATROPIUM BROMIDE [Concomitant]
     Active Substance: IPRATROPIUM BROMIDE
     Indication: Dyspnoea
     Dates: start: 20210318, end: 20210322
  89. MONTELUKAST SODIUM [Concomitant]
     Active Substance: MONTELUKAST SODIUM
     Indication: Dyspnoea
     Dates: start: 20210318, end: 20210322
  90. AMIODARONE HYDROCHLORIDE [Concomitant]
     Active Substance: AMIODARONE HYDROCHLORIDE
     Dates: start: 20210316, end: 20210316
  91. ISOSORBIDE MONONITRATE [Concomitant]
     Active Substance: ISOSORBIDE MONONITRATE
     Dates: start: 20210316, end: 20210322
  92. ISOSORBIDE MONONITRATE [Concomitant]
     Active Substance: ISOSORBIDE MONONITRATE
     Dates: start: 20210322, end: 20210404
  93. ENOXAPARIN SODIUM [Concomitant]
     Active Substance: ENOXAPARIN SODIUM
     Dates: start: 20210316, end: 20210317
  94. CREATINE [Concomitant]
     Active Substance: CREATINE
     Dates: start: 20210316, end: 20210322
  95. ASPIRIN [Concomitant]
     Active Substance: ASPIRIN
     Dates: start: 20210316, end: 20210320
  96. CLOPIDOGREL BISULFATE [Concomitant]
     Active Substance: CLOPIDOGREL BISULFATE
     Dates: start: 20210316, end: 20210318
  97. COENZYME Q10 [Concomitant]
     Active Substance: DIETARY SUPPLEMENT\UBIDECARENONE
     Dates: start: 20210318, end: 20210322
  98. TRIMETAZIDINE DIHYDROCHLORIDE [Concomitant]
     Active Substance: TRIMETAZIDINE DIHYDROCHLORIDE
     Dates: start: 20210318, end: 20210322
  99. TRIMETAZIDINE DIHYDROCHLORIDE [Concomitant]
     Active Substance: TRIMETAZIDINE DIHYDROCHLORIDE
     Dates: start: 20210322, end: 20210404
  100. RIVAROXABAN [Concomitant]
     Active Substance: RIVAROXABAN
     Dates: start: 20210319, end: 20210320
  101. SODIUM BICARBONATE [Concomitant]
     Active Substance: SODIUM BICARBONATE
     Dates: start: 20210315, end: 20210315
  102. MONTMORILLONITE [Concomitant]
     Active Substance: MONTMORILLONITE
     Indication: Diarrhoea
     Dates: start: 20210311, end: 20210311
  103. PSEUDOEPHEDRINE HYDROCHLORIDE [Concomitant]
     Active Substance: PSEUDOEPHEDRINE HYDROCHLORIDE
     Indication: Cough
     Dates: start: 20201015, end: 20201026
  104. VITAMIN D3 [Concomitant]
     Active Substance: CHOLECALCIFEROL
     Indication: Cough
     Dates: start: 20201015, end: 20201021
  105. OPRELVEKIN [Concomitant]
     Active Substance: OPRELVEKIN
     Indication: Platelet count increased
     Dates: start: 20200813, end: 20200815
  106. OPRELVEKIN [Concomitant]
     Active Substance: OPRELVEKIN
     Dates: start: 20201112, end: 20201114
  107. OPRELVEKIN [Concomitant]
     Active Substance: OPRELVEKIN
     Dates: start: 20201116, end: 20201122
  108. OPRELVEKIN [Concomitant]
     Active Substance: OPRELVEKIN
     Dates: start: 20201208, end: 20201212
  109. OPRELVEKIN [Concomitant]
     Active Substance: OPRELVEKIN
     Dates: start: 20201231, end: 20210104
  110. OPRELVEKIN [Concomitant]
     Active Substance: OPRELVEKIN
     Dates: start: 20210118, end: 20210120
  111. OPRELVEKIN [Concomitant]
     Active Substance: OPRELVEKIN
     Dates: start: 20210122, end: 20210128
  112. OPRELVEKIN [Concomitant]
     Active Substance: OPRELVEKIN
     Dates: start: 20210226, end: 20210307
  113. OPRELVEKIN [Concomitant]
     Active Substance: OPRELVEKIN
     Dates: start: 20210311, end: 20210313
  114. CALCIUM CARBONATE\CHOLECALCIFEROL [Concomitant]
     Active Substance: CALCIUM CARBONATE\CHOLECALCIFEROL
     Indication: Cough
     Dates: start: 20201015, end: 20201021
  115. DESLANOSIDE [Concomitant]
     Active Substance: DESLANOSIDE
     Dates: start: 20210315, end: 20210315
  116. UBIDECARENONE [Concomitant]
     Active Substance: UBIDECARENONE
     Dates: start: 20210322, end: 20210404
  117. THEOPHYLLINE ANHYDROUS [Concomitant]
     Active Substance: THEOPHYLLINE ANHYDROUS
     Dates: start: 20210322, end: 20210404
  118. TIOTROPIUM BROMIDE [Concomitant]
     Active Substance: TIOTROPIUM BROMIDE
     Route: 065
     Dates: start: 20210322, end: 20210404
  119. SPIRONOLACTONE [Concomitant]
     Active Substance: SPIRONOLACTONE
     Indication: Polyuria
     Dates: start: 20210322, end: 20210404
  120. DIGOXIN [Concomitant]
     Active Substance: DIGOXIN
     Dates: start: 20210322, end: 20210404

REACTIONS (2)
  - Anaemia [Not Recovered/Not Resolved]
  - Neutrophil count decreased [Recovered/Resolved]

NARRATIVE: CASE EVENT DATE: 20200806
